FAERS Safety Report 5609404-2 (Version None)
Quarter: 2008Q1

REPORT INFORMATION
  Report Type: 
  Country: None (occurrence: None)
  Receive Date: 20080131
  Receipt Date: 20080129
  Transmission Date: 20080703
  Serious: Yes (Death, Hospitalization)
  Sender: FDA-Public Use
  Company Number: GB-SANOFI-SYNTHELABO-F01200800152

PATIENT
  Sex: Male

DRUGS (3)
  1. CAPECITABINE [Suspect]
     Route: 048
     Dates: start: 20070806, end: 20070814
  2. OXALIPLATIN [Suspect]
     Indication: COLORECTAL CANCER
     Route: 041
     Dates: start: 20070806, end: 20070806
  3. PAZOPANIB [Suspect]
     Dosage: 800 MG
     Route: 048
     Dates: start: 20070806, end: 20070815

REACTIONS (4)
  - CARDIAC ARREST [None]
  - LETHARGY [None]
  - SUDDEN DEATH [None]
  - VOMITING [None]
